FAERS Safety Report 5403004-5 (Version None)
Quarter: 2007Q3

REPORT INFORMATION
  Report Type: 
  Country: None (occurrence: None)
  Receive Date: 20070718
  Receipt Date: 20061229
  Transmission Date: 20080115
  Serious: Yes (Hospitalization, Other)
  Sender: FDA-Public Use
  Company Number: 2006110979

PATIENT
  Age: 48 Year
  Sex: Female
  Weight: 62.1 kg

DRUGS (2)
  1. CELEBREX [Suspect]
     Indication: MUSCULOSKELETAL PAIN
     Dosage: 200 MG (100 MG,2 IN 1 D)
     Dates: start: 20010301
  2. CELEBREX [Suspect]
     Indication: PAIN MANAGEMENT
     Dosage: 200 MG (100 MG,2 IN 1 D)
     Dates: start: 20010301

REACTIONS (2)
  - ANXIETY [None]
  - CEREBROVASCULAR ACCIDENT [None]
